FAERS Safety Report 7750602-X (Version None)
Quarter: 2011Q3

REPORT INFORMATION
  Report Type: 
  Country: None (occurrence: None)
  Receive Date: 20110914
  Receipt Date: 20110908
  Transmission Date: 20111222
  Serious: Yes (Hospitalization)
  Sender: FDA-Public Use
  Company Number: US-GLAXOSMITHKLINE-A0839045A

PATIENT
  Age: 79 Year
  Sex: Male
  Weight: 99.1 kg

DRUGS (13)
  1. ATENOLOL [Concomitant]
  2. COMBIVENT [Concomitant]
  3. ASPIRIN [Concomitant]
  4. PLAQUENIL [Concomitant]
  5. AVANDAMET [Suspect]
     Indication: DIABETES MELLITUS
     Route: 048
     Dates: start: 20060913, end: 20070424
  6. ZESTRIL [Concomitant]
  7. NITROGLYCERIN [Concomitant]
  8. GLYNASE [Concomitant]
  9. LIPITOR [Concomitant]
  10. ASPIRIN [Concomitant]
  11. LISINOPRIL [Concomitant]
  12. ADVAIR DISKUS 100/50 [Concomitant]
  13. HYDROXYCHLOROQUINE [Concomitant]

REACTIONS (3)
  - RENAL FAILURE [None]
  - CARDIAC FAILURE CONGESTIVE [None]
  - CORONARY ARTERY DISEASE [None]
